FAERS Safety Report 19973576 (Version 1)
Quarter: 2021Q4

REPORT INFORMATION
  Report Type: Spontaneous
  Country: US (occurrence: US)
  Receive Date: 20211020
  Receipt Date: 20211020
  Transmission Date: 20220303
  Serious: Yes (Hospitalization)
  Sender: FDA-Public Use
  Company Number: None

PATIENT
  Age: 66 Year
  Sex: Female
  Weight: 146 kg

DRUGS (2)
  1. REGEN-COV [Suspect]
     Active Substance: CASIRIVIMAB\IMDEVIMAB
     Indication: COVID-19
     Dosage: ?          OTHER FREQUENCY:ONCE;
     Route: 040
     Dates: start: 20211007, end: 20211007
  2. sodium chloride 0.9 % [Concomitant]
     Dates: start: 20211007, end: 20211007

REACTIONS (3)
  - COVID-19 [None]
  - Sepsis [None]
  - Asthenia [None]

NARRATIVE: CASE EVENT DATE: 20211007
